FAERS Safety Report 5188028-8 (Version None)
Quarter: 2006Q4

REPORT INFORMATION
  Report Type: 
  Country: None (occurrence: None)
  Receive Date: 20061214
  Receipt Date: 20061214
  Transmission Date: 20070319
  Serious: No
  Sender: FDA-Public Use
  Company Number: None

PATIENT
  Age: 42 Year
  Sex: Male
  Weight: 75.7507 kg

DRUGS (2)
  1. OMNISCAN [Suspect]
     Indication: LYMPHADENOPATHY
     Dosage: 40 CC ONE TIME IV BOLUS
     Route: 040
     Dates: start: 20021104, end: 20021104
  2. OMNISCAN [Suspect]
     Indication: LYMPHOMA
     Dosage: 40 CC ONE TIME IV BOLUS
     Route: 040
     Dates: start: 20021104, end: 20021104

REACTIONS (4)
  - ASTHENIA [None]
  - FATIGUE [None]
  - NEPHROGENIC FIBROSING DERMOPATHY [None]
  - OEDEMA PERIPHERAL [None]
